FAERS Safety Report 8287289-6 (Version None)
Quarter: 2012Q2

REPORT INFORMATION
  Report Type: 
  Country: None (occurrence: None)
  Receive Date: 20120416
  Receipt Date: 20120416
  Transmission Date: 20120825
  Serious: Yes (Other)
  Sender: FDA-Public Use
  Company Number: None

PATIENT
  Age: 78 Year
  Sex: Male
  Weight: 83.914 kg

DRUGS (1)
  1. ATOVAQUONE/PROGUANIL HYDROCHLORIDE [Suspect]
     Indication: MALARIA PROPHYLAXIS
     Dosage: 1 TAB
     Route: 048
     Dates: start: 20120303, end: 20120317

REACTIONS (5)
  - BLOOD PRESSURE INCREASED [None]
  - PRURITUS [None]
  - SKIN DISORDER [None]
  - HEADACHE [None]
  - ARTHROPOD BITE [None]
